FAERS Safety Report 24911383 (Version 1)
Quarter: 2025Q1

REPORT INFORMATION
  Report Type: Spontaneous
  Country: US (occurrence: US)
  Receive Date: 20250131
  Receipt Date: 20250131
  Transmission Date: 20250409
  Serious: No
  Sender: MYLAN
  Company Number: US-MYLANLABS-2025M1006113

PATIENT
  Sex: Female
  Weight: 48.5 kg

DRUGS (1)
  1. TOBI [Suspect]
     Active Substance: TOBRAMYCIN
     Indication: Cystic fibrosis
     Dosage: UNK, BID(TWICE A DAY FOR 28 DAYS)
     Route: 065

REACTIONS (2)
  - Product residue present [Unknown]
  - Off label use [Unknown]
